FAERS Safety Report 5353666-6 (Version None)
Quarter: 2007Q2

REPORT INFORMATION
  Report Type: 
  Country: None (occurrence: None)
  Receive Date: 20070612
  Receipt Date: 20070606
  Transmission Date: 20071010
  Serious: Yes (Death, Other)
  Sender: FDA-Public Use
  Company Number: AU-AVENTIS-200712764GDDC

PATIENT
  Age: 82 Year
  Sex: Female

DRUGS (1)
  1. ARAVA [Suspect]
     Route: 048
     Dates: start: 20060501, end: 20061126

REACTIONS (5)
  - ANOREXIA [None]
  - DIARRHOEA [None]
  - FAILURE TO THRIVE [None]
  - NAUSEA [None]
  - PNEUMONIA [None]
